FAERS Safety Report 25406188 (Version 1)
Quarter: 2025Q2

REPORT INFORMATION
  Report Type: Spontaneous
  Country: GB (occurrence: GB)
  Receive Date: 20250606
  Receipt Date: 20250606
  Transmission Date: 20250717
  Serious: Yes (Other)
  Sender: RANBAXY
  Company Number: GB-SUNPHARMA-2025R1-509217AA

PATIENT
  Sex: Male

DRUGS (2)
  1. DUAC [Suspect]
     Active Substance: BENZOYL PEROXIDE\CLINDAMYCIN PHOSPHATE
     Indication: Acne
     Route: 065
     Dates: start: 20241020, end: 20241025
  2. DUAC [Suspect]
     Active Substance: BENZOYL PEROXIDE\CLINDAMYCIN PHOSPHATE
     Route: 065
     Dates: start: 20241020, end: 20241025

REACTIONS (11)
  - Swelling face [Unknown]
  - Dry skin [Unknown]
  - Erythema [Unknown]
  - Pruritus [Unknown]
  - Burning sensation [Unknown]
  - Purging [Unknown]
  - Condition aggravated [Unknown]
  - Eye swelling [Unknown]
  - Skin irritation [Unknown]
  - Discomfort [Unknown]
  - Emotional distress [Unknown]

NARRATIVE: CASE EVENT DATE: 20241020
